FAERS Safety Report 8509074 (Version 2)
Quarter: 2013Q2

REPORT INFORMATION
  Report Type: Spontaneous
  Country: US (occurrence: US)
  Receive Date: 20120412
  Receipt Date: 20130429
  Transmission Date: 20140414
  Serious: No
  Sender: FDA-Public Use
  Company Number: US-ASTRAZENECA-2012SE05225

PATIENT
  Age: 54 Year
  Sex: Female

DRUGS (2)
  1. NEXIUM [Suspect]
     Route: 048
  2. OTHER MEDICATION [Suspect]
     Route: 065

REACTIONS (3)
  - Gastric disorder [Unknown]
  - Abdominal discomfort [Unknown]
  - Drug dose omission [Unknown]
